FAERS Safety Report 8602856 (Version 7)
Quarter: 2013Q3

REPORT INFORMATION
  Report Type: Report from Study
  Country: JP (occurrence: JP)
  Receive Date: 20120607
  Receipt Date: 20130911
  Transmission Date: 20140515
  Serious: Yes (Life-Threatening, Hospitalization)
  Sender: FDA-Public Use
  Company Number: JP-ROCHE-1073639

PATIENT
  Age: 66 Year
  Sex: Male
  Weight: 60.8 kg

DRUGS (8)
  1. TOCILIZUMAB [Suspect]
     Indication: RHEUMATOID ARTHRITIS
     Route: 058
     Dates: start: 20110304
  2. TOCILIZUMAB [Suspect]
     Route: 058
     Dates: start: 20120223, end: 20120223
  3. KETOPROFEN [Suspect]
     Indication: RHEUMATOID ARTHRITIS
     Route: 061
     Dates: start: 20030704
  4. IMIDAPRIL HYDROCHLORIDE [Suspect]
     Indication: HYPERTENSION
     Route: 048
     Dates: start: 2004
  5. EFONIDIPINE [Suspect]
     Indication: HYPERTENSION
     Route: 048
     Dates: start: 2004
  6. OLMESARTAN MEDOXOMIL [Suspect]
     Indication: HYPERTENSION
     Route: 048
     Dates: start: 20090306
  7. NIFEDIPINE [Suspect]
     Indication: HYPERTENSION
     Route: 048
     Dates: start: 20101001
  8. MISOPROSTOL [Suspect]
     Indication: GASTRITIS PROPHYLAXIS
     Route: 048
     Dates: start: 20120322, end: 20120525

REACTIONS (3)
  - Agranulocytosis [Not Recovered/Not Resolved]
  - Pneumonia [Recovered/Resolved]
  - Septic shock [Recovered/Resolved]
